FAERS Safety Report 16379065 (Version 2)
Quarter: 2019Q2

REPORT INFORMATION
  Report Type: Report from Study
  Country: CA (occurrence: CA)
  Receive Date: 20190531
  Receipt Date: 20190625
  Transmission Date: 20190711
  Serious: Yes (Death)
  Sender: FDA-Public Use
  Company Number: CA-TAIHO ONCOLOGY  INC-EU-2019-01811

PATIENT
  Age: 34 Year
  Sex: Male
  Weight: 101.9 kg

DRUGS (8)
  1. SULFOLAX [Concomitant]
     Dosage: NI
  2. MELATONIN [Concomitant]
     Active Substance: MELATONIN
  3. LONSURF [Suspect]
     Active Substance: TIPIRACIL HYDROCHLORIDE\TRIFLURIDINE
     Indication: RECTAL CANCER
     Dosage: CURRENT CYCLE UNKNOWN
     Route: 048
     Dates: start: 20190318, end: 2019
  4. OXYCODONE [Concomitant]
     Active Substance: OXYCODONE
  5. PREGABALIN. [Concomitant]
     Active Substance: PREGABALIN
  6. HYDROCODONE [Concomitant]
     Active Substance: HYDROCODONE
  7. RITALIN [Concomitant]
     Active Substance: METHYLPHENIDATE HYDROCHLORIDE
  8. XARELTO [Concomitant]
     Active Substance: RIVAROXABAN
     Dosage: EVERY NIGHT AT BEDTIME

REACTIONS (1)
  - Rectal cancer metastatic [Fatal]

NARRATIVE: CASE EVENT DATE: 20190511
